FAERS Safety Report 13969324 (Version 2)
Quarter: 2018Q4

REPORT INFORMATION
  Report Type: Report from Study
  Country: CR (occurrence: CR)
  Receive Date: 20170914
  Receipt Date: 20181218
  Transmission Date: 20190204
  Serious: Yes (Other)
  Sender: FDA-Public Use
  Company Number: PHHY2016CR083855

PATIENT
  Age: 68 Year
  Sex: Male

DRUGS (1)
  1. TASIGNA [Suspect]
     Active Substance: NILOTINIB
     Indication: PRODUCT USED FOR UNKNOWN INDICATION
     Dosage: 1 DF, BID (ONE IN THE MORNING AND ONE AT AFTERNOON)
     Route: 065

REACTIONS (13)
  - Head injury [Unknown]
  - Varicella [Unknown]
  - Cardiac disorder [Unknown]
  - Feeling abnormal [Unknown]
  - Loss of consciousness [Unknown]
  - Sciatic nerve neuropathy [Unknown]
  - Back pain [Unknown]
  - Herpes virus infection [Unknown]
  - Musculoskeletal discomfort [Unknown]
  - Road traffic accident [Unknown]
  - Malaise [Unknown]
  - Hypersensitivity [Recovered/Resolved]
  - Neuralgia [Unknown]
